FAERS Safety Report 6315452-X (Version None)
Quarter: 2009Q3

REPORT INFORMATION
  Report Type: 
  Country: None (occurrence: None)
  Receive Date: 20090819
  Receipt Date: 20090805
  Transmission Date: 20100115
  Serious: Yes (Other)
  Sender: FDA-Public Use
  Company Number: US-PFIZER INC-2009251826

PATIENT
  Sex: Female
  Weight: 57.596 kg

DRUGS (1)
  1. CHANTIX [Suspect]
     Indication: SMOKING CESSATION THERAPY
     Dosage: UNK
     Route: 048
     Dates: start: 20090723

REACTIONS (5)
  - CONVULSION [None]
  - DEPRESSION [None]
  - PHARYNGEAL OEDEMA [None]
  - SUICIDAL IDEATION [None]
  - TACHYPHRENIA [None]
